FAERS Safety Report 4551612-6 (Version None)
Quarter: 2005Q1

REPORT INFORMATION
  Report Type: 
  Country: None (occurrence: None)
  Receive Date: 20050113
  Receipt Date: 20050105
  Transmission Date: 20050727
  Serious: Yes (Hospitalization)
  Sender: FDA-Public Use
  Company Number: US-GLAXOSMITHKLINE-A0539372A

PATIENT
  Age: 34 Year
  Sex: Male

DRUGS (8)
  1. NICORETTE [Suspect]
     Dates: start: 19980101
  2. NICORETTE [Suspect]
     Route: 002
     Dates: start: 19970101, end: 19980101
  3. RISPERDAL [Concomitant]
     Route: 048
  4. ABILIFY [Concomitant]
     Route: 048
  5. BLOOD PRESSURE MEDICATION [Concomitant]
     Route: 048
  6. THYROID TAB [Concomitant]
     Route: 048
  7. DEPAKOTE [Concomitant]
     Route: 048
  8. PRILOSEC [Concomitant]
     Route: 048

REACTIONS (4)
  - DELUSION [None]
  - DRUG ABUSER [None]
  - HALLUCINATION, AUDITORY [None]
  - SCHIZOPHRENIA [None]
